FAERS Safety Report 19039978 (Version 1)
Quarter: 2021Q1

REPORT INFORMATION
  Report Type: Spontaneous
  Country: CA (occurrence: CA)
  Receive Date: 20210322
  Receipt Date: 20210322
  Transmission Date: 20210420
  Serious: Yes (Hospitalization)
  Sender: FDA-Public Use
  Company Number: CA-JNJFOC-20210331573

PATIENT
  Age: 56 Year
  Sex: Male
  Weight: 55 kg

DRUGS (5)
  1. CYANOCOBALAMIN. [Concomitant]
     Active Substance: CYANOCOBALAMIN
     Route: 065
  2. METHOTREXATE. [Concomitant]
     Active Substance: METHOTREXATE
     Route: 065
  3. DEXILANT [Concomitant]
     Active Substance: DEXLANSOPRAZOLE
     Dosage: DELAYED RELEASE
     Route: 065
  4. REMICADE [Suspect]
     Active Substance: INFLIXIMAB
     Indication: CROHN^S DISEASE
     Route: 042
  5. CALCIUM [Concomitant]
     Active Substance: CALCIUM
     Indication: PRODUCT USED FOR UNKNOWN INDICATION
     Route: 065

REACTIONS (8)
  - Jaundice [Recovered/Resolved]
  - Off label use [Recovered/Resolved]
  - Heart rate decreased [Recovered/Resolved]
  - Weight decreased [Recovered/Resolved]
  - Intentional product use issue [Recovered/Resolved]
  - Respiratory rate increased [Recovered/Resolved]
  - Condition aggravated [Recovered/Resolved]
  - Product use issue [Recovered/Resolved]
